FAERS Safety Report 7154393-5 (Version None)
Quarter: 2010Q4

REPORT INFORMATION
  Report Type: 
  Country: None (occurrence: None)
  Receive Date: 20101213
  Receipt Date: 20101130
  Transmission Date: 20110411
  Serious: Yes (Congenital Anomaly)
  Sender: FDA-Public Use
  Company Number: FR-ELI_LILLY_AND_COMPANY-FR201011007422

PATIENT

DRUGS (4)
  1. PROZAC [Suspect]
     Indication: DEPRESSION
     Dosage: 1 D/F, DAILY (1/D)
     Route: 064
     Dates: end: 20090101
  2. SALAZOPYRINE [Concomitant]
     Indication: ANKYLOSING SPONDYLITIS
     Dosage: 500 MG, 4/D
     Route: 064
     Dates: end: 20090101
  3. HUMIRA [Concomitant]
     Indication: ANKYLOSING SPONDYLITIS
     Dosage: 40 MG, OTHER
     Route: 064
     Dates: end: 20100916
  4. XANAX [Concomitant]
     Indication: DEPRESSION
     Dosage: 1.5 D/F, DAILY (1/D)
     Route: 064
     Dates: end: 20090101

REACTIONS (2)
  - AMNIOTIC BAND SYNDROME [None]
  - DRUG EXPOSURE DURING PREGNANCY [None]
